FAERS Safety Report 8576331-0 (Version None)
Quarter: 2012Q3

REPORT INFORMATION
  Report Type: 
  Country: None (occurrence: None)
  Receive Date: 20120807
  Receipt Date: 20080415
  Transmission Date: 20120928
  Serious: Yes (Other)
  Sender: FDA-Public Use
  Company Number: CO-PFIZER INC-2012188676

PATIENT
  Age: 69 Year
  Sex: Male

DRUGS (4)
  1. LIPITOR [Suspect]
     Indication: DYSLIPIDAEMIA
     Dosage: 10 MG, 1X/DAY
  2. ACETYLSALICYLIC ACID [Concomitant]
     Dosage: 100 MG, 1X/DAY
  3. VERAPAMIL HYDROCHLORIDE [Concomitant]
     Dosage: 120 MG, 2X/DAY
  4. OLMESARTAN MEDOXOMIL AND HYDROCHLOROTHIZIDE [Suspect]
     Indication: HYPERTENSION
     Dosage: OLMESARTAN/HYDROCHLOROTHIAZIDE 20/12.5 MG, 1X/DAY

REACTIONS (4)
  - TOBACCO ABUSE [None]
  - CARDIAC DISORDER [None]
  - HAEMATURIA [None]
  - CARDIAC VALVE DISEASE [None]
